FAERS Safety Report 8364601-0 (Version None)
Quarter: 2012Q2

REPORT INFORMATION
  Report Type: 
  Country: None (occurrence: None)
  Receive Date: 20120516
  Receipt Date: 20120508
  Transmission Date: 20120825
  Serious: Yes (Other)
  Sender: FDA-Public Use
  Company Number: US-ASTRAZENECA-2012SE04368

PATIENT
  Age: 59 Year
  Sex: Male
  Weight: 87.1 kg

DRUGS (7)
  1. IMDUR [Concomitant]
  2. ZOUR [Concomitant]
  3. PLAVIX [Concomitant]
  4. NEXIUM [Suspect]
     Route: 048
  5. ASPIRIN [Concomitant]
  6. LISINOPRIL [Concomitant]
  7. TOPROL-XL [Concomitant]

REACTIONS (2)
  - CORONARY ARTERY DISEASE [None]
  - ACUTE MYOCARDIAL INFARCTION [None]
